FAERS Safety Report 15762778 (Version 3)
Quarter: 2019Q1

REPORT INFORMATION
  Report Type: Spontaneous
  Country: RO (occurrence: RO)
  Receive Date: 20181226
  Receipt Date: 20190204
  Transmission Date: 20190417
  Serious: Yes (Death, Other)
  Sender: FDA-Public Use
  Company Number: RO-MYLANLABS-2018M1095838

PATIENT

DRUGS (2)
  1. CARBOPLATIN. [Suspect]
     Active Substance: CARBOPLATIN
     Indication: ADENOCARCINOMA
     Dosage: UNK
     Route: 065
  2. VINORELBINE [Suspect]
     Active Substance: VINORELBINE\VINORELBINE TARTRATE
     Indication: ADENOCARCINOMA
     Dosage: UNK
     Route: 042

REACTIONS (4)
  - Anaemia [Unknown]
  - Pneumonia klebsiella [Fatal]
  - Eastern Cooperative Oncology Group performance status worsened [Unknown]
  - Respiratory failure [Fatal]
